FAERS Safety Report 17953041 (Version 1)
Quarter: 2020Q2

REPORT INFORMATION
  Report Type: Spontaneous
  Country: US (occurrence: US)
  Receive Date: 20200627
  Receipt Date: 20200627
  Transmission Date: 20200714
  Serious: No
  Sender: FDA-Public Use
  Company Number: US-AMGEN-USASP2020101523

PATIENT
  Sex: Female

DRUGS (1)
  1. OTEZLA [Suspect]
     Active Substance: APREMILAST
     Indication: PSORIASIS
     Dosage: UNK, UNK
     Route: 065
     Dates: start: 202005, end: 202006

REACTIONS (3)
  - Drug ineffective [Unknown]
  - Psoriasis [Unknown]
  - Product supply issue [Unknown]

NARRATIVE: CASE EVENT DATE: 2020
